FAERS Safety Report 12756921 (Version 2)
Quarter: 2017Q1

REPORT INFORMATION
  Report Type: Spontaneous
  Country: US (occurrence: US)
  Receive Date: 20160917
  Receipt Date: 20170316
  Transmission Date: 20170428
  Serious: No
  Sender: FDA-Public Use
  Company Number: GXBR2016US002379

PATIENT
  Sex: Female

DRUGS (1)
  1. GLATOPA [Suspect]
     Active Substance: GLATIRAMER ACETATE
     Indication: PRODUCT USED FOR UNKNOWN INDICATION
     Route: 065

REACTIONS (10)
  - Injection site vesicles [Unknown]
  - Chills [Unknown]
  - Injection site erythema [Unknown]
  - Tremor [Unknown]
  - Injection site swelling [Unknown]
  - Injection site pain [Unknown]
  - Burning sensation [Unknown]
  - Injection site urticaria [Unknown]
  - Flushing [Unknown]
  - Muscle spasms [Unknown]
